FAERS Safety Report 8064044-3 (Version None)
Quarter: 2012Q1

REPORT INFORMATION
  Report Type: 
  Country: None (occurrence: None)
  Receive Date: 20120123
  Receipt Date: 20120108
  Transmission Date: 20120608
  Serious: Yes (Other)
  Sender: FDA-Public Use
  Company Number: CA-ELI_LILLY_AND_COMPANY-CA201201002286

PATIENT
  Age: 54 Year
  Sex: Female

DRUGS (5)
  1. FORTEO [Suspect]
     Indication: OSTEOPOROSIS
     Dosage: 20 UG, QD
     Route: 058
     Dates: start: 20101213
  2. PROPRANOLOL [Concomitant]
  3. METFORMIN HYDROCHLORIDE [Concomitant]
  4. AMITRIPTYLINE HCL [Concomitant]
  5. LIPITOR [Concomitant]

REACTIONS (1)
  - HIP ARTHROPLASTY [None]
